FAERS Safety Report 7914180-4 (Version None)
Quarter: 2011Q4

REPORT INFORMATION
  Report Type: 
  Country: None (occurrence: None)
  Receive Date: 20111115
  Receipt Date: 20111115
  Transmission Date: 20120403
  Serious: Yes (Other)
  Sender: FDA-Public Use
  Company Number: None

PATIENT
  Age: 34 Year
  Sex: Male
  Weight: 82.1 kg

DRUGS (2)
  1. LATUDA [Suspect]
     Indication: SCHIZOPHRENIA
     Dosage: 40MG
     Dates: start: 20111111, end: 20111113
  2. LATUDA [Suspect]
     Indication: OBSESSIVE-COMPULSIVE DISORDER
     Dosage: 40MG
     Dates: start: 20111111, end: 20111113

REACTIONS (3)
  - AGITATION [None]
  - INSOMNIA [None]
  - AGGRESSION [None]
